FAERS Safety Report 10491730 (Version 1)
Quarter: 2014Q4

REPORT INFORMATION
  Report Type: Spontaneous
  Country: US (occurrence: US)
  Receive Date: 20141002
  Receipt Date: 20141002
  Transmission Date: 20150528
  Serious: No
  Sender: FDA-Public Use
  Company Number: US-GLAXOSMITHKLINE-A1058691A

PATIENT
  Age: 53 Year
  Sex: Female

DRUGS (1)
  1. ADVAIR HFA [Suspect]
     Active Substance: FLUTICASONE PROPIONATE\SALMETEROL XINAFOATE
     Indication: ASTHMA
     Route: 055
     Dates: start: 201306

REACTIONS (5)
  - Bone disorder [Unknown]
  - Bone pain [Unknown]
  - Pulmonary function test decreased [Unknown]
  - Drug ineffective [Unknown]
  - Dysphonia [Unknown]
